FAERS Safety Report 7010910-7 (Version None)
Quarter: 2010Q3

REPORT INFORMATION
  Report Type: 
  Country: None (occurrence: None)
  Receive Date: 20100923
  Receipt Date: 20100923
  Transmission Date: 20110219
  Serious: Yes (Disabling)
  Sender: FDA-Public Use
  Company Number: None

PATIENT

DRUGS (2)
  1. AMLODIPINE [Suspect]
     Indication: BLOOD PRESSURE INCREASED
     Dosage: 5 MG 1 PER DAY
     Dates: start: 20100501, end: 20100901
  2. AMLODIPINE [Suspect]
     Dosage: 5 MG 1 PER DAY

REACTIONS (6)
  - BRAIN NEOPLASM BENIGN [None]
  - DEAFNESS UNILATERAL [None]
  - DIZZINESS [None]
  - DRUG INEFFECTIVE [None]
  - NAUSEA [None]
  - OTITIS EXTERNA [None]
